FAERS Safety Report 8024260-3 (Version None)
Quarter: 2012Q1

REPORT INFORMATION
  Report Type: 
  Country: None (occurrence: None)
  Receive Date: 20120105
  Receipt Date: 20120103
  Transmission Date: 20120608
  Serious: Yes (Hospitalization, Other)
  Sender: FDA-Public Use
  Company Number: PHHY2010CA88267

PATIENT
  Sex: Female

DRUGS (9)
  1. ACETAMINOPHEN [Concomitant]
     Dosage: UNK UKN, UNK
  2. MICARDIS [Concomitant]
     Dosage: 80 MG, QD
     Dates: start: 20041001
  3. CAL-MAG [Concomitant]
     Dosage: 250 MG, UNK
     Dates: start: 20091026
  4. CALCIUM ACETATE [Concomitant]
     Dosage: UNK UKN, UNK
     Dates: start: 20090101
  5. CRESTOR [Concomitant]
     Dosage: 40 MG, QD
     Dates: start: 20040901
  6. ZOLEDRONOC ACID [Suspect]
     Dosage: 5 MG PER YEAR
     Route: 042
     Dates: start: 20110202
  7. ZOLEDRONOC ACID [Suspect]
     Indication: OSTEOPOROSIS
     Dosage: 5 MG PER YEAR
     Route: 042
     Dates: start: 20090205
  8. ZOLEDRONOC ACID [Suspect]
     Dosage: 5 MG PER YEAR
     Route: 042
     Dates: start: 20100127
  9. VITAMIN D [Concomitant]
     Dosage: UNK UKN, UNK
     Dates: start: 20090101

REACTIONS (8)
  - OXYGEN SATURATION DECREASED [None]
  - PULMONARY EMBOLISM [None]
  - FALL [None]
  - ATRIAL FIBRILLATION [None]
  - HERPES ZOSTER [None]
  - PELVIC PROLAPSE [None]
  - HEAD INJURY [None]
  - CARDIAC DISORDER [None]
